FAERS Safety Report 15854896 (Version 3)
Quarter: 2019Q4

REPORT INFORMATION
  Report Type: Report from Study
  Country: US (occurrence: US)
  Receive Date: 20190122
  Receipt Date: 20191126
  Transmission Date: 20200122
  Serious: Yes (Hospitalization)
  Sender: FDA-Public Use
  Company Number: US-EISAI MEDICAL RESEARCH-EC-2017-034685

PATIENT
  Age: 77 Year
  Sex: Female
  Weight: 54 kg

DRUGS (22)
  1. LENVIMA [Suspect]
     Active Substance: LENVATINIB
     Indication: HEAD AND NECK CANCER
     Route: 048
     Dates: start: 2018, end: 2018
  2. CENTRUM SILVER [Concomitant]
     Active Substance: MINERALS\VITAMINS
  3. CLONIDINE HCL [Concomitant]
     Active Substance: CLONIDINE HYDROCHLORIDE
  4. LENVIMA [Suspect]
     Active Substance: LENVATINIB
     Indication: THYROID CANCER
     Route: 048
     Dates: start: 20171218, end: 201801
  5. LENVIMA [Suspect]
     Active Substance: LENVATINIB
     Route: 048
     Dates: start: 20180410, end: 20190102
  6. LOMOTIL [Concomitant]
     Active Substance: ATROPINE SULFATE\DIPHENOXYLATE HYDROCHLORIDE
  7. AMLODIPINE BESYLATE. [Concomitant]
     Active Substance: AMLODIPINE BESYLATE
  8. SYNTHROID [Concomitant]
     Active Substance: LEVOTHYROXINE SODIUM
  9. LENVIMA [Suspect]
     Active Substance: LENVATINIB
     Route: 048
     Dates: start: 2019, end: 201905
  10. DIPHENOXYLATE-ATROPINE [Concomitant]
     Active Substance: ATROPINE\DIPHENOXYLATE
  11. TYLENOL EXTRA STRENGTH [Concomitant]
     Active Substance: ACETAMINOPHEN
  12. LENVIMA [Suspect]
     Active Substance: LENVATINIB
     Route: 048
     Dates: start: 20180227, end: 20180405
  13. LISINOPRIL. [Concomitant]
     Active Substance: LISINOPRIL
  14. LENVIMA [Suspect]
     Active Substance: LENVATINIB
     Indication: LUNG NEOPLASM MALIGNANT
     Route: 048
     Dates: start: 201801, end: 2018
  15. LENVIMA [Suspect]
     Active Substance: LENVATINIB
     Route: 048
     Dates: start: 20190818, end: 2019
  16. OXYBUTYN [Concomitant]
  17. ENALAPRIL [Concomitant]
     Active Substance: ENALAPRIL
  18. DEXILANT [Concomitant]
     Active Substance: DEXLANSOPRAZOLE
  19. ALEVE [Concomitant]
     Active Substance: NAPROXEN SODIUM
  20. LENVIMA [Suspect]
     Active Substance: LENVATINIB
     Route: 048
     Dates: start: 201906, end: 20190817
  21. LIPITOR [Concomitant]
     Active Substance: ATORVASTATIN CALCIUM
  22. CALCIUM [Concomitant]
     Active Substance: CALCIUM

REACTIONS (32)
  - Arthritis [Unknown]
  - Blood potassium decreased [Not Recovered/Not Resolved]
  - Weight decreased [Unknown]
  - Cholelithiasis [Recovered/Resolved]
  - Stomatitis [Not Recovered/Not Resolved]
  - Thyroglobulin increased [Unknown]
  - Bone pain [Unknown]
  - Diarrhoea haemorrhagic [Recovered/Resolved]
  - Decreased appetite [Recovering/Resolving]
  - Peripheral swelling [Unknown]
  - Nausea [Recovering/Resolving]
  - Vomiting [Recovered/Resolved]
  - Pyrexia [Unknown]
  - Feeling cold [Not Recovered/Not Resolved]
  - Electrocardiogram abnormal [Unknown]
  - Abdominal pain upper [Unknown]
  - Feeding disorder [Not Recovered/Not Resolved]
  - Diarrhoea [Recovered/Resolved]
  - Hypertension [Unknown]
  - Malignant neoplasm progression [Not Recovered/Not Resolved]
  - Myalgia [Unknown]
  - Asthenia [Unknown]
  - Fatigue [Recovering/Resolving]
  - Early satiety [Unknown]
  - Arthralgia [Recovered/Resolved]
  - Malaise [Recovering/Resolving]
  - Influenza [Unknown]
  - Alopecia [Unknown]
  - Tooth loss [Unknown]
  - Bone loss [Not Recovered/Not Resolved]
  - Nasopharyngitis [Recovered/Resolved]
  - Dysphonia [Unknown]

NARRATIVE: CASE EVENT DATE: 201712
